FAERS Safety Report 8992408 (Version 1)
Quarter: 2012Q4

REPORT INFORMATION
  Report Type: 
  Country: TR (occurrence: TR)
  Receive Date: 20121231
  Receipt Date: 20121231
  Transmission Date: 20130627
  Serious: Yes (Other)
  Sender: FDA-Public Use
  Company Number: TR-BRISTOL-MYERS SQUIBB COMPANY-15744253

PATIENT
  Age: 30 Year
  Sex: Male
  Weight: 72 kg

DRUGS (1)
  1. BARACLUDE TABS 1.0 MG [Suspect]
     Indication: CHRONIC HEPATITIS B
     Route: 048

REACTIONS (1)
  - Libido decreased [Not Recovered/Not Resolved]
